FAERS Safety Report 9227089 (Version 1)
Quarter: 2013Q2

REPORT INFORMATION
  Report Type: Spontaneous
  Country: US (occurrence: None)
  Receive Date: 20130410
  Receipt Date: 20130410
  Transmission Date: 20140414
  Serious: Yes (Other)
  Sender: FDA-Public Use
  Company Number: None

PATIENT
  Age: 51 Year
  Sex: Male
  Weight: 117.03 kg

DRUGS (7)
  1. VENLAFAXINE ER [Suspect]
     Indication: DEPRESSION
     Dosage: 150MG DAILY PO
     Route: 048
     Dates: start: 20071221, end: 20080514
  2. JANUVIA [Concomitant]
  3. METFORMIN [Concomitant]
  4. CYMBALTA [Concomitant]
  5. PRILOSEC [Concomitant]
  6. LISINOPRIL [Concomitant]
  7. MOBIC [Concomitant]

REACTIONS (4)
  - Drug effect decreased [None]
  - Abdominal discomfort [None]
  - Depression [None]
  - Product substitution issue [None]
